FAERS Safety Report 15386848 (Version 4)
Quarter: 2019Q3

REPORT INFORMATION
  Report Type: Spontaneous
  Country: US (occurrence: US)
  Receive Date: 20180914
  Receipt Date: 20190805
  Transmission Date: 20191004
  Serious: Yes (Hospitalization)
  Sender: FDA-Public Use
  Company Number: US-PFIZER INC-2018368370

PATIENT
  Age: 53 Year
  Sex: Female

DRUGS (1)
  1. XELJANZ XR [Suspect]
     Active Substance: TOFACITINIB CITRATE
     Dosage: 11 MG, UNK
     Dates: start: 20180430

REACTIONS (8)
  - Peripheral swelling [Unknown]
  - Arthralgia [Unknown]
  - Cellulitis [Unknown]
  - Paraesthesia [Unknown]
  - Gait inability [Unknown]
  - Feeling abnormal [Unknown]
  - Somnolence [Unknown]
  - Cholelithiasis [Unknown]
